FAERS Safety Report 10284225 (Version 8)
Quarter: 2015Q2

REPORT INFORMATION
  Report Type: Report from Study
  Country: US (occurrence: US)
  Receive Date: 20140708
  Receipt Date: 20150508
  Transmission Date: 20150821
  Serious: Yes (Hospitalization, Disabling, Other)
  Sender: FDA-Public Use
  Company Number: US-SA-2014SA021765

PATIENT
  Age: 39 Year
  Sex: Female

DRUGS (3)
  1. AMPYRA [Concomitant]
     Active Substance: DALFAMPRIDINE
  2. COUMADIN [Suspect]
     Active Substance: WARFARIN SODIUM
     Indication: PULMONARY EMBOLISM
     Route: 065
     Dates: start: 201504
  3. AUBAGIO [Suspect]
     Active Substance: TERIFLUNOMIDE
     Indication: MULTIPLE SCLEROSIS
     Route: 048
     Dates: start: 20140130, end: 20150419

REACTIONS (16)
  - Hypertension [Unknown]
  - Menorrhagia [Unknown]
  - Urinary tract infection [Unknown]
  - Pulmonary embolism [Unknown]
  - Fall [Unknown]
  - Chest pain [Unknown]
  - Diarrhoea [Unknown]
  - Loss of consciousness [Unknown]
  - Back pain [Unknown]
  - Pollakiuria [Not Recovered/Not Resolved]
  - Frustration [Unknown]
  - Walking aid user [Unknown]
  - Unevaluable event [Unknown]
  - Bladder disorder [Not Recovered/Not Resolved]
  - Disability [Unknown]
  - Flatulence [Unknown]

NARRATIVE: CASE EVENT DATE: 2014
